FAERS Safety Report 9162228 (Version 5)
Quarter: 2013Q2

REPORT INFORMATION
  Report Type: Report from Study
  Country: NL (occurrence: NL)
  Receive Date: 20130314
  Receipt Date: 20130417
  Transmission Date: 20140414
  Serious: Yes (Other)
  Sender: FDA-Public Use
  Company Number: PHHY2013NL024654

PATIENT
  Sex: Female

DRUGS (11)
  1. ACLASTA [Suspect]
     Indication: OSTEOPOROSIS
     Dosage: 5 MG ONCE PER 364 DAYS
     Route: 042
     Dates: start: 20110324
  2. ACLASTA [Suspect]
     Dosage: 5 MG ONCE PER 364 DAYS
     Route: 042
     Dates: start: 20120322
  3. CALCICHEW D3 [Concomitant]
     Dosage: UNK 1DD1
  4. AMITRIPTYLINE [Concomitant]
     Dosage: 10 MG, 1DD2
  5. EUTHYROX [Concomitant]
     Dosage: 100 UG, 1DD1
  6. FENPROCOUMON [Concomitant]
     Dosage: 3 MG, UNK
  7. FENTANYL [Concomitant]
     Dosage: 25 UG, ONCE PER 3 DAYS
  8. HUMALOG [Concomitant]
     Dosage: UNK UKN, UNK
  9. MACROGOL [Concomitant]
     Dosage: UNK 1DD1-2
  10. PRAVASTATIN [Concomitant]
     Dosage: 20 MG, 1DD1
  11. RISPERIDONE [Concomitant]
     Dosage: 0.5 MG, 2DD1

REACTIONS (4)
  - Multiple fractures [Unknown]
  - Spinal fracture [Unknown]
  - Back disorder [Unknown]
  - Therapeutic response decreased [Unknown]
